FAERS Safety Report 9202439 (Version 8)
Quarter: 2013Q3

REPORT INFORMATION
  Report Type: Report from Study
  Country: US (occurrence: US)
  Receive Date: 20130401
  Receipt Date: 20130919
  Transmission Date: 20140515
  Serious: No
  Sender: FDA-Public Use
  Company Number: US-VERTEX PHARMACEUTICALS INC.-2013-004151

PATIENT
  Age: 56 Year
  Sex: Female
  Weight: 65.76 kg

DRUGS (7)
  1. VX-950 (TELAPREVIR) [Suspect]
     Indication: HEPATITIS C
     Dosage: 750 MG, TID
     Route: 048
     Dates: start: 20130319, end: 201306
  2. PEGASYS [Suspect]
     Indication: HEPATITIS C
     Dosage: 96 ?G, QW
     Route: 058
     Dates: start: 20130319
  3. RIBAVIRIN [Suspect]
     Indication: HEPATITIS C
     Dosage: 600 MGAM, 400 MGPM
     Route: 048
     Dates: start: 20130319
  4. VITAMIN D [Concomitant]
     Dosage: 1000 UT, UNK
  5. VITAMIN B 12 [Concomitant]
     Dosage: 1000 CR
  6. LIVER /KIDNEY CAP CLEANSER [Concomitant]
  7. VITAMIN C [Concomitant]
     Dosage: 500 MG, UNK

REACTIONS (27)
  - Vulval disorder [Unknown]
  - Dizziness [Recovered/Resolved]
  - Dyspnoea exertional [Not Recovered/Not Resolved]
  - Tinnitus [Unknown]
  - Dysuria [Unknown]
  - Dysphagia [Unknown]
  - Headache [Unknown]
  - Pain [Unknown]
  - Gingival inflammation [Recovered/Resolved]
  - Cough [Unknown]
  - Agitation [Not Recovered/Not Resolved]
  - Mood swings [Not Recovered/Not Resolved]
  - Injection site pain [Recovered/Resolved]
  - Decreased appetite [Unknown]
  - Chills [Unknown]
  - Lethargy [Not Recovered/Not Resolved]
  - Back pain [Not Recovered/Not Resolved]
  - Malaise [Unknown]
  - Neutrophil count decreased [Not Recovered/Not Resolved]
  - Sluggishness [Unknown]
  - Fatigue [Not Recovered/Not Resolved]
  - Rash generalised [Not Recovered/Not Resolved]
  - Dysgeusia [Unknown]
  - Diarrhoea [Unknown]
  - Haemorrhoids [Unknown]
  - Nausea [Unknown]
  - Pruritus generalised [Recovered/Resolved]
